FAERS Safety Report 4870580-0 (Version None)
Quarter: 2006Q1

REPORT INFORMATION
  Report Type: 
  Country: None (occurrence: None)
  Receive Date: 20060103
  Receipt Date: 20051222
  Transmission Date: 20060701
  Serious: Yes (Hospitalization)
  Sender: FDA-Public Use
  Company Number: US-AVENTIS-200521328GDDC

PATIENT
  Age: 84 Year
  Sex: Male

DRUGS (2)
  1. DOCETAXEL [Suspect]
     Indication: PROSTATE CANCER
     Route: 042
     Dates: start: 20050721, end: 20050822
  2. PREDNISONE 50MG TAB [Suspect]
     Route: 048
     Dates: start: 20050721

REACTIONS (6)
  - DEEP VEIN THROMBOSIS [None]
  - EROSIVE OESOPHAGITIS [None]
  - FEBRILE NEUTROPENIA [None]
  - GASTROINTESTINAL HAEMORRHAGE [None]
  - LETHARGY [None]
  - ORTHOSTATIC HYPOTENSION [None]
